FAERS Safety Report 10962638 (Version 1)
Quarter: 2015Q1

REPORT INFORMATION
  Report Type: Spontaneous
  Country: US (occurrence: None)
  Receive Date: 20150226
  Receipt Date: 20150226
  Transmission Date: 20150721
  Serious: No
  Sender: FDA-Public Use
  Company Number: TPA2009A00939

PATIENT
  Age: 65 Year
  Sex: Male

DRUGS (6)
  1. PROZAC [Concomitant]
     Active Substance: FLUOXETINE HYDROCHLORIDE
  2. NEXIUM [Concomitant]
     Active Substance: ESOMEPRAZOLE MAGNESIUM
  3. KLONOPIN [Concomitant]
     Active Substance: CLONAZEPAM
  4. LOTREL (AMLODIPINE, BENAZEPRIL HYDROCHLOIRDE) [Concomitant]
  5. ULORIC [Suspect]
     Active Substance: FEBUXOSTAT
     Indication: GOUT
     Route: 048
     Dates: start: 20090427, end: 20090430
  6. SINGULAIR (MONTELUKAST) [Concomitant]

REACTIONS (2)
  - Pain [None]
  - Chest pain [None]

NARRATIVE: CASE EVENT DATE: 200904
